FAERS Safety Report 17403306 (Version 1)
Quarter: 2020Q1

REPORT INFORMATION
  Report Type: Spontaneous
  Country: US (occurrence: US)
  Receive Date: 20200211
  Receipt Date: 20200211
  Transmission Date: 20200409
  Serious: No
  Sender: FDA-Public Use
  Company Number: US-PERRIGO-19US007180

PATIENT
  Age: 56 Year
  Sex: Female
  Weight: 45.35 kg

DRUGS (1)
  1. TRETINOIN 0.05% CREAM (2L4) [Suspect]
     Active Substance: TRETINOIN
     Indication: ACNE
     Dosage: SMALL AMOUNT, QD
     Route: 061
     Dates: start: 20190603, end: 20190607

REACTIONS (1)
  - Contusion [Not Recovered/Not Resolved]

NARRATIVE: CASE EVENT DATE: 20190605
